FAERS Safety Report 24997597 (Version 2)
Quarter: 2025Q1

REPORT INFORMATION
  Report Type: Spontaneous
  Country: US (occurrence: US)
  Receive Date: 20250222
  Receipt Date: 20250311
  Transmission Date: 20250408
  Serious: No
  Sender: ROCHE
  Company Number: US-ROCHE-10000209183

PATIENT
  Age: 79 Year
  Sex: Female

DRUGS (13)
  1. VABYSMO [Suspect]
     Active Substance: FARICIMAB-SVOA
     Indication: Neovascular age-related macular degeneration
     Route: 050
     Dates: start: 20241003
  2. AVASTIN [Suspect]
     Active Substance: BEVACIZUMAB
     Indication: Neovascular age-related macular degeneration
     Route: 050
     Dates: start: 20230925
  3. AVASTIN [Suspect]
     Active Substance: BEVACIZUMAB
     Route: 050
     Dates: start: 20231026
  4. AVASTIN [Suspect]
     Active Substance: BEVACIZUMAB
     Route: 050
     Dates: start: 20231127
  5. AVASTIN [Suspect]
     Active Substance: BEVACIZUMAB
     Route: 050
     Dates: start: 20240101
  6. AVASTIN [Suspect]
     Active Substance: BEVACIZUMAB
     Route: 050
     Dates: start: 20240404
  7. AVASTIN [Suspect]
     Active Substance: BEVACIZUMAB
     Route: 050
     Dates: start: 20240718
  8. ASPIRIN [Concomitant]
     Active Substance: ASPIRIN
     Route: 048
  9. CALCIUM CITRATE\VITAMIN D [Concomitant]
     Active Substance: CALCIUM CITRATE\VITAMIN D
     Route: 048
  10. Focus [Concomitant]
     Route: 048
  11. GABAPENTIN [Concomitant]
     Active Substance: GABAPENTIN
     Route: 048
  12. LOSARTAN [Concomitant]
     Active Substance: LOSARTAN
     Route: 048
  13. TOPROL XL [Concomitant]
     Active Substance: METOPROLOL SUCCINATE
     Route: 048

REACTIONS (5)
  - Off label use [Unknown]
  - Erythema [Unknown]
  - Vitreous floaters [Unknown]
  - Haemorrhage [Unknown]
  - Ocular icterus [Unknown]
